FAERS Safety Report 17323469 (Version 1)
Quarter: 2020Q1

REPORT INFORMATION
  Report Type: Spontaneous
  Country: US (occurrence: US)
  Receive Date: 20200124
  Receipt Date: 20200124
  Transmission Date: 20200409
  Serious: Yes (Other)
  Sender: FDA-Public Use
  Company Number: None

PATIENT
  Age: 58 Year
  Sex: Female
  Weight: 74.84 kg

DRUGS (1)
  1. GREEN M BATIK AND RED BATIK KRATOM [Suspect]
     Active Substance: HERBALS\MITRAGYNINE
     Route: 048
     Dates: start: 20180102, end: 20180102

REACTIONS (4)
  - Dyspnoea [None]
  - Influenza like illness [None]
  - Chest discomfort [None]
  - Abdominal pain upper [None]

NARRATIVE: CASE EVENT DATE: 20180102
